FAERS Safety Report 15298289 (Version 4)
Quarter: 2019Q1

REPORT INFORMATION
  Report Type: Spontaneous
  Country: JP (occurrence: JP)
  Receive Date: 20180820
  Receipt Date: 20190114
  Transmission Date: 20190417
  Serious: Yes (Other)
  Sender: FDA-Public Use
  Company Number: JP-ALLERGAN-1840590US

PATIENT
  Age: 1 Day
  Sex: Female
  Weight: 2.75 kg

DRUGS (3)
  1. ESCITALOPRAM OXALATE - BP [Suspect]
     Active Substance: ESCITALOPRAM OXALATE
     Indication: MATERNAL EXPOSURE DURING PREGNANCY
     Dosage: 10 MG, QD
     Route: 064
  2. RONLAX [Concomitant]
     Active Substance: ETHYL LOFLAZEPATE
     Indication: EXPOSURE DURING PREGNANCY
     Dosage: 0.5 MG, QD
     Route: 064
  3. SOLANAX [Concomitant]
     Active Substance: ALPRAZOLAM
     Indication: EXPOSURE DURING PREGNANCY
     Dosage: 0.4 MG, AS NEEDED DURING ANXIETY
     Route: 064

REACTIONS (2)
  - Foetal exposure during pregnancy [Unknown]
  - Persistent foetal circulation [Recovered/Resolved]

NARRATIVE: CASE EVENT DATE: 20180724
